FAERS Safety Report 9379808 (Version 1)
Quarter: 2013Q3

REPORT INFORMATION
  Report Type: Spontaneous
  Country: US (occurrence: None)
  Receive Date: 20130701
  Receipt Date: 20130701
  Transmission Date: 20140515
  Serious: Yes (Hospitalization)
  Sender: FDA-Public Use
  Company Number: None

PATIENT
  Age: 47 None
  Sex: Female

DRUGS (1)
  1. SUTENT 25MG PFIZER [Suspect]
     Indication: PANCREATIC CARCINOMA
     Dosage: 25MG DAILY BY MOUTH
     Route: 048
     Dates: start: 201304, end: 201306

REACTIONS (5)
  - Haematochezia [None]
  - Intestinal haemorrhage [None]
  - Helicobacter infection [None]
  - Candida infection [None]
  - Oesophageal infection [None]
